FAERS Safety Report 25705688 (Version 1)
Quarter: 2025Q3

REPORT INFORMATION
  Report Type: Spontaneous
  Country: EU (occurrence: EU)
  Receive Date: 20250820
  Receipt Date: 20250820
  Transmission Date: 20251020
  Serious: Yes (Life-Threatening, Hospitalization)
  Sender: SAMSUNG BIOEPIS
  Company Number: EU-SAMSUNG BIOEPIS-SB-2025-28203

PATIENT
  Age: 22 Year
  Sex: Male

DRUGS (6)
  1. ETANERCEPT [Suspect]
     Active Substance: ETANERCEPT
     Indication: Juvenile idiopathic arthritis
     Dates: start: 20230123
  2. ETANERCEPT [Suspect]
     Active Substance: ETANERCEPT
     Dates: start: 20230802
  3. ETANERCEPT [Suspect]
     Active Substance: ETANERCEPT
     Dates: start: 20240205
  4. ETANERCEPT [Suspect]
     Active Substance: ETANERCEPT
     Dates: start: 20240731
  5. ETANERCEPT [Suspect]
     Active Substance: ETANERCEPT
     Dates: start: 20250115
  6. ETANERCEPT [Suspect]
     Active Substance: ETANERCEPT
     Dates: start: 20250721

REACTIONS (2)
  - Craniocerebral injury [Recovered/Resolved]
  - Osteochondral autograft [Not Recovered/Not Resolved]

NARRATIVE: CASE EVENT DATE: 20250202
